FAERS Safety Report 6062799-0 (Version None)
Quarter: 2009Q1

REPORT INFORMATION
  Report Type: 
  Country: None (occurrence: None)
  Receive Date: 20090203
  Receipt Date: 20090126
  Transmission Date: 20090719
  Serious: Yes (Hospitalization)
  Sender: FDA-Public Use
  Company Number: GB-AVENTIS-200821048GDDC

PATIENT
  Age: 72 Year
  Sex: Male
  Weight: 92 kg

DRUGS (5)
  1. DOCETAXEL [Suspect]
     Indication: PROSTATE CANCER
     Route: 042
     Dates: start: 20080910, end: 20081112
  2. ZOLEDRONIC ACID [Suspect]
     Indication: PROSTATE CANCER
     Route: 042
     Dates: start: 20080910, end: 20081112
  3. PREDNISOLONE [Suspect]
     Indication: PROSTATE CANCER
     Dates: start: 20080910, end: 20081123
  4. CALCIUM [Concomitant]
  5. ERGOCALCIFEROL [Concomitant]

REACTIONS (2)
  - NEUTROPENIA [None]
  - URINARY RETENTION [None]
